FAERS Safety Report 9418847 (Version 1)
Quarter: 2013Q3

REPORT INFORMATION
  Report Type: Spontaneous
  Country: CA (occurrence: CA)
  Receive Date: 20130725
  Receipt Date: 20130725
  Transmission Date: 20140515
  Serious: Yes (Hospitalization, Other)
  Sender: FDA-Public Use
  Company Number: CA-CELGENEUS-028-20785-13071871

PATIENT
  Age: 49 Year
  Sex: Female

DRUGS (3)
  1. THALOMID [Suspect]
     Indication: PLASMA CELL MYELOMA
     Route: 048
     Dates: start: 20130704, end: 201307
  2. VELCADE [Suspect]
     Indication: PLASMA CELL MYELOMA
     Route: 065
     Dates: start: 200902
  3. METOPROLOL [Concomitant]
     Indication: PRODUCT USED FOR UNKNOWN INDICATION
     Route: 065
     Dates: start: 201307

REACTIONS (5)
  - Fall [Unknown]
  - Foot fracture [Unknown]
  - Atrial fibrillation [Unknown]
  - Haemoglobin decreased [Unknown]
  - Syncope [Unknown]
